FAERS Safety Report 14133181 (Version 2)
Quarter: 2017Q4

REPORT INFORMATION
  Report Type: Report from Study
  Country: CA (occurrence: CA)
  Receive Date: 20171027
  Receipt Date: 20171218
  Transmission Date: 20180321
  Serious: Yes (Other)
  Sender: FDA-Public Use
  Company Number: CA-AMGEN-CANSL2017160650

PATIENT
  Age: 67 Year
  Sex: Female

DRUGS (1)
  1. PROLIA [Suspect]
     Active Substance: DENOSUMAB
     Indication: OSTEOPOROSIS
     Dosage: 60 MG/ML, UNK
     Route: 058
     Dates: start: 20150316, end: 201610

REACTIONS (1)
  - Spinal fracture [Recovering/Resolving]

NARRATIVE: CASE EVENT DATE: 20171001
